FAERS Safety Report 5146512-7 (Version None)
Quarter: 2006Q4

REPORT INFORMATION
  Report Type: 
  Country: None (occurrence: None)
  Receive Date: 20061109
  Receipt Date: 20061031
  Transmission Date: 20070319
  Serious: Yes (Death, Life-Threatening, Other)
  Sender: FDA-Public Use
  Company Number: GB-JNJFOC-20060605505

PATIENT
  Sex: Female
  Weight: 86 kg

DRUGS (8)
  1. REMICADE [Suspect]
     Indication: RHEUMATOID ARTHRITIS
     Route: 042
  2. METHOTREXATE [Concomitant]
     Route: 065
  3. PREDNISOLONE [Concomitant]
     Route: 065
  4. CO-PROXAMOL [Concomitant]
     Route: 065
  5. FOLIC ACID [Concomitant]
     Route: 065
  6. FORTEPINE [Concomitant]
     Route: 065
  7. HRT [Concomitant]
     Route: 065
  8. INDOCID-R [Concomitant]
     Route: 065

REACTIONS (3)
  - BRONCHOPNEUMONIA [None]
  - CEREBROVASCULAR ACCIDENT [None]
  - RESPIRATORY FAILURE [None]
